FAERS Safety Report 14717932 (Version 3)
Quarter: 2019Q2

REPORT INFORMATION
  Report Type: Spontaneous
  Country: US (occurrence: US)
  Receive Date: 20180404
  Receipt Date: 20190509
  Transmission Date: 20190711
  Serious: No
  Sender: FDA-Public Use
  Company Number: US-SA-2018SA052931

PATIENT
  Age: 53 Year
  Sex: Female

DRUGS (2)
  1. DUPIXENT [Suspect]
     Active Substance: DUPILUMAB
     Indication: ECZEMA
     Dosage: 300 MG,QOW
     Route: 058
     Dates: start: 20170619
  2. DUPIXENT [Suspect]
     Active Substance: DUPILUMAB
     Indication: ILL-DEFINED DISORDER

REACTIONS (5)
  - Neck pain [Unknown]
  - Eczema eyelids [Unknown]
  - Eye infection [Unknown]
  - Depression [Unknown]
  - Musculoskeletal pain [Unknown]

NARRATIVE: CASE EVENT DATE: 201712
